FAERS Safety Report 13070024 (Version 2)
Quarter: 2016Q4

REPORT INFORMATION
  Report Type: Spontaneous
  Country: JP (occurrence: JP)
  Receive Date: 20161228
  Receipt Date: 20161229
  Transmission Date: 20170207
  Serious: Yes (Other)
  Sender: FDA-Public Use
  Company Number: PHJP2016JP035871

PATIENT
  Age: 51 Year
  Sex: Male

DRUGS (3)
  1. CARBAMAZEPINE. [Interacting]
     Active Substance: CARBAMAZEPINE
     Dosage: 600 MG, QD
     Route: 065
  2. CARBAMAZEPINE. [Suspect]
     Active Substance: CARBAMAZEPINE
     Indication: EPILEPSY
     Dosage: 500 MG, QD
     Route: 065
  3. CLARITHROMYCIN. [Interacting]
     Active Substance: CLARITHROMYCIN
     Indication: PNEUMONIA
     Dosage: 400 MG, QD
     Route: 065

REACTIONS (9)
  - Pneumonia [Unknown]
  - Dizziness [Recovering/Resolving]
  - Cough [Unknown]
  - Toxicity to various agents [Unknown]
  - Epilepsy [Recovering/Resolving]
  - Gait disturbance [Recovering/Resolving]
  - Dysarthria [Recovering/Resolving]
  - Drug interaction [Unknown]
  - Dyslalia [Recovering/Resolving]
